FAERS Safety Report 16565648 (Version 2)
Quarter: 2021Q4

REPORT INFORMATION
  Report Type: Spontaneous
  Country: US (occurrence: US)
  Receive Date: 20190712
  Receipt Date: 20211022
  Transmission Date: 20220303
  Serious: No
  Sender: FDA-Public Use
  Company Number: US-PFIZER INC-2019294946

PATIENT
  Sex: Female

DRUGS (2)
  1. METHOTREXATE SODIUM [Suspect]
     Active Substance: METHOTREXATE SODIUM
     Dosage: UNK
  2. AMOXICILLIN [Suspect]
     Active Substance: AMOXICILLIN
     Dosage: UNK

REACTIONS (1)
  - Drug hypersensitivity [Unknown]
